FAERS Safety Report 5826744-2 (Version None)
Quarter: 2008Q3

REPORT INFORMATION
  Report Type: 
  Country: None (occurrence: None)
  Receive Date: 20080728
  Receipt Date: 20080728
  Transmission Date: 20090109
  Serious: No
  Sender: FDA-Public Use
  Company Number: None

PATIENT
  Sex: Female
  Weight: 85.2762 kg

DRUGS (9)
  1. LEVAQUIN [Suspect]
     Indication: ERYTHEMA
     Dosage: 1 TABLET EVERY DAY PO
     Route: 048
     Dates: start: 20080421, end: 20080425
  2. LEVAQUIN [Suspect]
     Indication: INFECTION
     Dosage: 1 TABLET EVERY DAY PO
     Route: 048
     Dates: start: 20080421, end: 20080425
  3. SIMVASTATIN [Concomitant]
  4. PLAVIX [Concomitant]
  5. CARVEDILOL [Concomitant]
  6. DIOVAN HCT [Concomitant]
  7. PRILOSEC OTC [Concomitant]
  8. INDOMETHACIN [Concomitant]
  9. GLUCOSAMINE CHONDROITIN [Concomitant]

REACTIONS (6)
  - FEELING COLD [None]
  - GAIT DISTURBANCE [None]
  - INSOMNIA [None]
  - LETHARGY [None]
  - TENDON RUPTURE [None]
  - TENDONITIS [None]
